FAERS Safety Report 14028142 (Version 1)
Quarter: 2017Q4

REPORT INFORMATION
  Report Type: Spontaneous
  Country: DK (occurrence: DK)
  Receive Date: 20171002
  Receipt Date: 20171002
  Transmission Date: 20180321
  Serious: Yes (Other)
  Sender: FDA-Public Use
  Company Number: DK-TEVA-808798ACC

PATIENT
  Age: 57 Year
  Sex: Female

DRUGS (1)
  1. LITAREX [Suspect]
     Active Substance: LITHIUM CITRATE
     Indication: DEPRESSION
     Dosage: STRENGTH: 6 MMOL LI+. VARYING DOSES.
     Route: 048
     Dates: start: 2004, end: 20140602

REACTIONS (2)
  - Blood creatinine increased [Unknown]
  - Renal impairment [Unknown]

NARRATIVE: CASE EVENT DATE: 201310
